FAERS Safety Report 6602894-8 (Version None)
Quarter: 2010Q1

REPORT INFORMATION
  Report Type: 
  Country: None (occurrence: None)
  Receive Date: 20100226
  Receipt Date: 20100211
  Transmission Date: 20100710
  Serious: Yes (Other)
  Sender: FDA-Public Use
  Company Number: US-ELI_LILLY_AND_COMPANY-US201002003695

PATIENT
  Sex: Male

DRUGS (8)
  1. EFFIENT [Suspect]
     Indication: PERCUTANEOUS CORONARY INTERVENTION
     Dosage: 60 MG, UNK
     Dates: start: 20100201
  2. ASPIRIN [Concomitant]
     Dosage: 325 MG, UNK
  3. LISINOPRIL [Concomitant]
     Dosage: 20 MG, 2/D
  4. LIPITOR [Concomitant]
     Dosage: 40 MG, DAILY (1/D)
  5. IBUPROFEN [Concomitant]
  6. TOPROL-XL [Concomitant]
     Dosage: 50 MG, DAILY (1/D)
  7. LORA TAB [Concomitant]
  8. NEXIUM [Concomitant]

REACTIONS (1)
  - CHEST PAIN [None]
